FAERS Safety Report 6190523-X (Version None)
Quarter: 2009Q2

REPORT INFORMATION
  Report Type: 
  Country: None (occurrence: None)
  Receive Date: 20090514
  Receipt Date: 20090430
  Transmission Date: 20091009
  Serious: Yes (Hospitalization, Other)
  Sender: FDA-Public Use
  Company Number: PHEH2009US04264

PATIENT
  Age: 80 Year
  Sex: Female

DRUGS (14)
  1. DIOVAN [Suspect]
     Dosage: 80 MG, UNK
     Dates: start: 20080101
  2. CATAPRES                                /USA/ [Suspect]
  3. COZAAR [Suspect]
  4. LISINOPRIL [Suspect]
  5. AMILORIDE HCL AND HYDROCHLOROTHIAZIDE [Suspect]
  6. CLONIDINE [Suspect]
     Dosage: 0.1 MG, HALF IN AM AND HALF IN PM
     Dates: start: 20080401
  7. NADOLOL [Suspect]
  8. MINOXIDIL [Suspect]
     Dosage: 2.5 MG, QID
  9. LASIX [Suspect]
  10. ANTIHYPERTENSIVES [Suspect]
  11. ACE INHIBITOR NOS [Suspect]
  12. ANGIOTENSIN II ANTAGONISTS [Suspect]
  13. CALCIUM CHANNEL BLOCKERS [Suspect]
  14. AMILORIDE HYDROCHLORIDE [Suspect]

REACTIONS (13)
  - BACK PAIN [None]
  - BLOOD PRESSURE INCREASED [None]
  - DEPRESSION [None]
  - DRUG INEFFECTIVE [None]
  - DRY SKIN [None]
  - HEADACHE [None]
  - HEART RATE INCREASED [None]
  - HYPERHIDROSIS [None]
  - MALAISE [None]
  - MUSCLE SPASMS [None]
  - MUSCULOSKELETAL PAIN [None]
  - THIRST [None]
  - VOMITING [None]
